FAERS Safety Report 5415473-5 (Version None)
Quarter: 2007Q3

REPORT INFORMATION
  Report Type: 
  Country: None (occurrence: None)
  Receive Date: 20070815
  Receipt Date: 20070803
  Transmission Date: 20080115
  Serious: Yes (Hospitalization)
  Sender: FDA-Public Use
  Company Number: FR-ROCHE-510683

PATIENT
  Age: 38 Year
  Sex: Female

DRUGS (2)
  1. ROFERON-A [Suspect]
     Indication: HEPATITIS C
     Dosage: FORMULATION: INJECTABLE SOLUTION.
     Route: 058
     Dates: start: 20070202, end: 20070328
  2. RIBAVIRIN [Suspect]
     Indication: HEPATITIS C
     Route: 048
     Dates: start: 20070202, end: 20070328

REACTIONS (1)
  - DISSEMINATED TUBERCULOSIS [None]
